FAERS Safety Report 22629651 (Version 1)
Quarter: 2023Q2

REPORT INFORMATION
  Report Type: Spontaneous
  Country: CN (occurrence: CN)
  Receive Date: 20230622
  Receipt Date: 20230622
  Transmission Date: 20230722
  Serious: Yes (Other)
  Sender: FDA-Public Use
  Company Number: CN-PFIZER INC-202300227866

PATIENT
  Sex: Male

DRUGS (1)
  1. CIBINQO [Suspect]
     Active Substance: ABROCITINIB
     Dosage: 1 DF, 1X/DAY
     Route: 048

REACTIONS (3)
  - Hepatic function abnormal [Unknown]
  - Renal impairment [Unknown]
  - Off label use [Unknown]
